FAERS Safety Report 7166620-9 (Version None)
Quarter: 2010Q4

REPORT INFORMATION
  Report Type: 
  Country: None (occurrence: None)
  Receive Date: 20101203
  Receipt Date: 20101118
  Transmission Date: 20110411
  Serious: Yes (Other)
  Sender: FDA-Public Use
  Company Number: 2010-4060

PATIENT
  Sex: Male

DRUGS (2)
  1. INCRELEX [Suspect]
     Indication: CHONDRODYSTROPHY
     Dosage: 70 UG/KG TWICE DAILY (70 UG/KG, 2 IN 1 D), 40 UG/KG TWICE DAILY (40 UG/KG, 2 IN 1 D)
     Dates: start: 20080131
  2. INCRELEX [Suspect]
     Indication: CHONDRODYSTROPHY
     Dosage: 70 UG/KG TWICE DAILY (70 UG/KG, 2 IN 1 D), 40 UG/KG TWICE DAILY (40 UG/KG, 2 IN 1 D)
     Dates: start: 20081215

REACTIONS (3)
  - CARDIAC VENTRICULAR DISORDER [None]
  - CYANOSIS [None]
  - TONSILLAR HYPERTROPHY [None]
